FAERS Safety Report 4866942-8 (Version None)
Quarter: 2005Q4

REPORT INFORMATION
  Report Type: 
  Country: None (occurrence: None)
  Receive Date: 20051222
  Receipt Date: 20051208
  Transmission Date: 20060501
  Serious: Yes (Hospitalization)
  Sender: FDA-Public Use
  Company Number: PHRM2005FR03243

PATIENT
  Sex: Female

DRUGS (1)
  1. VISUDYNE [Suspect]
     Indication: MACULAR DEGENERATION
     Dates: start: 20050101, end: 20050101

REACTIONS (1)
  - ASTHMA [None]
